FAERS Safety Report 24084337 (Version 1)
Quarter: 2024Q3

REPORT INFORMATION
  Report Type: Spontaneous
  Country: US (occurrence: None)
  Receive Date: 20240711
  Receipt Date: 20240711
  Transmission Date: 20241017
  Serious: Yes (Other)
  Sender: Public
  Company Number: None

PATIENT
  Age: 62 Year
  Sex: Female
  Weight: 100.8 kg

DRUGS (12)
  1. MACROBID [Suspect]
     Active Substance: NITROFURANTOIN\NITROFURANTOIN MONOHYDRATE
     Indication: Urinary tract infection
     Dosage: 14 CAPSULES TWICE A DAY ORAL?
     Route: 048
     Dates: start: 20240515
  2. AMOXICILLIN [Suspect]
     Active Substance: AMOXICILLIN
  3. UNSPECIFIED INGREDIENT [Concomitant]
     Active Substance: UNSPECIFIED INGREDIENT
  4. LISINOPRIL [Concomitant]
     Active Substance: LISINOPRIL
  5. BACLOFEN [Concomitant]
     Active Substance: BACLOFEN
  6. DULOXETINE [Concomitant]
     Active Substance: DULOXETINE
  7. PANTOPRAZOLE SODIUM [Concomitant]
     Active Substance: PANTOPRAZOLE SODIUM
  8. MOUTH PIECE FOR SLEEP APNEA [Concomitant]
  9. VTIAMIN A [Concomitant]
  10. VITAMIN C [Concomitant]
     Active Substance: ASCORBIC ACID
  11. VITAMIN D [Concomitant]
     Active Substance: VITAMIN D NOS
  12. ZINC [Concomitant]

REACTIONS (9)
  - Chills [None]
  - Musculoskeletal stiffness [None]
  - Throat tightness [None]
  - Facial pain [None]
  - Cough [None]
  - Sinusitis [None]
  - Drug ineffective [None]
  - Diarrhoea [None]
  - Muscle spasms [None]

NARRATIVE: CASE EVENT DATE: 20240518
